FAERS Safety Report 9907019 (Version 5)
Quarter: 2014Q2

REPORT INFORMATION
  Report Type: Spontaneous
  Country: US (occurrence: US)
  Receive Date: 20140218
  Receipt Date: 20140508
  Transmission Date: 20141212
  Serious: Yes (Hospitalization, Disabling, Other)
  Sender: FDA-Public Use
  Company Number: US-009507513-1203USA02903

PATIENT
  Sex: Female
  Weight: 77.98 kg

DRUGS (6)
  1. FOSAMAX [Suspect]
     Indication: OSTEOPENIA
     Dosage: 70 MG, QW
     Route: 048
  2. FOSAMAX [Suspect]
     Indication: OSTEOPOROSIS
     Dosage: 10 MG, UNK
     Route: 048
     Dates: start: 19960415
  3. FOSAMAX PLUS D [Suspect]
     Indication: BONE DENSITY DECREASED
     Dosage: 70 MG/2800 IU, UNK
     Route: 048
     Dates: start: 20080403, end: 20080529
  4. PREDNISONE [Concomitant]
     Dosage: 20 MG, UNK
  5. PREMARIN [Concomitant]
     Dosage: 0.625 MG, UNK
     Dates: start: 1978
  6. NAPROSYN [Concomitant]
     Indication: OSTEOARTHRITIS
     Dosage: 500 MG, BID
     Dates: start: 19970327

REACTIONS (34)
  - Femur fracture [Not Recovered/Not Resolved]
  - Intramedullary rod insertion [Unknown]
  - Femur fracture [Not Recovered/Not Resolved]
  - Intramedullary rod insertion [Unknown]
  - Cholecystectomy [Unknown]
  - Open reduction of fracture [Unknown]
  - Bone graft [Unknown]
  - Fall [Unknown]
  - Fall [Unknown]
  - Ulna fracture [Unknown]
  - Bone operation [Unknown]
  - Impaired healing [Unknown]
  - Bone operation [Unknown]
  - Breast mass [Unknown]
  - Type 2 diabetes mellitus [Unknown]
  - Intervertebral disc disorder [Unknown]
  - Tonsillectomy [Unknown]
  - Meniscus injury [Unknown]
  - Meniscus operation [Unknown]
  - Appendicectomy [Unknown]
  - Hypercholesterolaemia [Unknown]
  - Tachycardia [Unknown]
  - White blood cell count increased [Unknown]
  - Hypertension [Unknown]
  - Large intestine polyp [Unknown]
  - Osteoarthritis [Unknown]
  - Biliary dyskinesia [Unknown]
  - Anaemia postoperative [Unknown]
  - Ulna fracture [Unknown]
  - Fracture nonunion [Unknown]
  - Arthralgia [Not Recovered/Not Resolved]
  - Rash [Unknown]
  - Gastrooesophageal reflux disease [Unknown]
  - Drug effect decreased [Unknown]
